FAERS Safety Report 4759174-5 (Version None)
Quarter: 2005Q3

REPORT INFORMATION
  Report Type: 
  Country: None (occurrence: None)
  Receive Date: 20050831
  Receipt Date: 20050816
  Transmission Date: 20060218
  Serious: Yes (Hospitalization)
  Sender: FDA-Public Use
  Company Number: GBS050818197

PATIENT
  Age: 9 Year
  Sex: Male

DRUGS (2)
  1. STRATTERA [Suspect]
     Indication: ATTENTION DEFICIT/HYPERACTIVITY DISORDER
     Dosage: 10 MG/2 DAY
     Dates: start: 20050629, end: 20050803
  2. MELATONIN [Concomitant]

REACTIONS (9)
  - BALANCE DISORDER [None]
  - DEPRESSED LEVEL OF CONSCIOUSNESS [None]
  - DRUG PRESCRIBING ERROR [None]
  - FALL [None]
  - MALAISE [None]
  - NAUSEA [None]
  - PALLOR [None]
  - SOMNOLENCE [None]
  - VOMITING [None]
